FAERS Safety Report 5710179-7 (Version None)
Quarter: 2008Q2

REPORT INFORMATION
  Report Type: 
  Country: None (occurrence: None)
  Receive Date: 20080418
  Receipt Date: 20080107
  Transmission Date: 20081010
  Serious: No
  Sender: FDA-Public Use
  Company Number: US-ASTRAZENECA-2008UW00453

PATIENT
  Age: 49 Year
  Sex: Male
  Weight: 95.3 kg

DRUGS (4)
  1. TOPROL-XL [Suspect]
     Route: 048
  2. TOPROL-XL [Suspect]
     Route: 048
  3. NEXIUM [Concomitant]
  4. XANAX [Concomitant]

REACTIONS (1)
  - DRUG INEFFECTIVE [None]
